FAERS Safety Report 6985551-8 (Version None)
Quarter: 2010Q3

REPORT INFORMATION
  Report Type: 
  Country: None (occurrence: None)
  Receive Date: 20100915
  Receipt Date: 20100903
  Transmission Date: 20110219
  Serious: Yes (Other)
  Sender: FDA-Public Use
  Company Number: AU-JNJFOC-20100808127

PATIENT
  Age: 11 Year
  Sex: Male

DRUGS (2)
  1. INVEGA [Suspect]
     Indication: DISTURBANCE IN SOCIAL BEHAVIOUR
     Dosage: 3 TO 6 MG DAILY
     Route: 048
  2. INVEGA [Suspect]
     Indication: BIPOLAR DISORDER
     Dosage: 3 TO 6 MG DAILY
     Route: 048

REACTIONS (2)
  - AGGRESSION [None]
  - IRRITABILITY [None]
